FAERS Safety Report 11237636 (Version 2)
Quarter: 2015Q3

REPORT INFORMATION
  Report Type: Report from Study
  Country: NL (occurrence: NL)
  Receive Date: 20150703
  Receipt Date: 20150821
  Transmission Date: 20151125
  Serious: Yes (Other)
  Sender: FDA-Public Use
  Company Number: NL-ROCHE-1598533

PATIENT

DRUGS (1)
  1. CAPECITABINE. [Suspect]
     Active Substance: CAPECITABINE
     Indication: COLORECTAL CANCER
     Route: 048

REACTIONS (16)
  - Palmar-plantar erythrodysaesthesia syndrome [Unknown]
  - Hyperbilirubinaemia [Unknown]
  - Mucosal inflammation [Unknown]
  - Diarrhoea [Unknown]
  - Haematotoxicity [Unknown]
  - Stomatitis [Unknown]
  - Pain [Unknown]
  - Embolism [Unknown]
  - Decreased appetite [Unknown]
  - Nausea [Unknown]
  - Constipation [Unknown]
  - Infection [Unknown]
  - Anaemia [Unknown]
  - Hypertension [Unknown]
  - Thrombosis [Unknown]
  - Rash [Unknown]
